FAERS Safety Report 15121437 (Version 1)
Quarter: 2018Q3

REPORT INFORMATION
  Report Type: Spontaneous
  Country: FR (occurrence: FR)
  Receive Date: 20180709
  Receipt Date: 20180709
  Transmission Date: 20181010
  Serious: Yes (Hospitalization)
  Sender: FDA-Public Use
  Company Number: FR-ELI_LILLY_AND_COMPANY-FR201807001057

PATIENT
  Age: 69 Year
  Sex: Male

DRUGS (1)
  1. GEMZAR [Suspect]
     Active Substance: GEMCITABINE HYDROCHLORIDE
     Indication: PANCREATIC CARCINOMA
     Dosage: 2 G, CYCLICAL
     Route: 041
     Dates: start: 201708, end: 20180102

REACTIONS (4)
  - Pleurisy [Unknown]
  - Renal failure [Not Recovered/Not Resolved]
  - Hypertension [Unknown]
  - Oedema [Unknown]

NARRATIVE: CASE EVENT DATE: 20180125
